FAERS Safety Report 25579147 (Version 1)
Quarter: 2025Q3

REPORT INFORMATION
  Report Type: Spontaneous
  Country: EU (occurrence: EU)
  Receive Date: 20250718
  Receipt Date: 20250718
  Transmission Date: 20251020
  Serious: Yes (Other)
  Sender: INCYTE
  Company Number: EU-CHEPLA-2025008381

PATIENT
  Age: 69 Year

DRUGS (8)
  1. RUXOLITINIB [Suspect]
     Active Substance: RUXOLITINIB
     Indication: Myelofibrosis
     Route: 065
  2. RUXOLITINIB [Suspect]
     Active Substance: RUXOLITINIB
     Route: 065
  3. HYDROXYUREA [Suspect]
     Active Substance: HYDROXYUREA
     Indication: Polycythaemia vera
     Route: 065
  4. FEDRATINIB [Concomitant]
     Active Substance: FEDRATINIB
     Indication: Myelofibrosis
     Dosage: 200 MG, QD
     Route: 065
  5. FEDRATINIB [Concomitant]
     Active Substance: FEDRATINIB
     Dosage: 300 MG, QD
     Route: 065
  6. FEDRATINIB [Concomitant]
     Active Substance: FEDRATINIB
     Route: 065
  7. ONDANSETRON [Concomitant]
     Active Substance: ONDANSETRON
     Indication: Prophylaxis of nausea and vomiting
     Dosage: 16 MG, QD
     Route: 065
  8. VITAMIN B1 [Concomitant]
     Active Substance: THIAMINE HYDROCHLORIDE
     Indication: Product used for unknown indication
     Dosage: 100 MG, QD
     Route: 065

REACTIONS (5)
  - Anaemia [Recovered/Resolved]
  - Coagulopathy [Recovered/Resolved]
  - Portal hypertension [Recovered/Resolved]
  - Myelofibrosis [Recovered/Resolved]
  - Thrombocytopenia [Recovered/Resolved]
